FAERS Safety Report 25048605 (Version 1)
Quarter: 2025Q1

REPORT INFORMATION
  Report Type: Spontaneous
  Country: DK (occurrence: DK)
  Receive Date: 20250307
  Receipt Date: 20250307
  Transmission Date: 20250409
  Serious: Yes (Other)
  Sender: IPCA
  Company Number: DK-IPCA LABORATORIES LIMITED-IPC-2025-DK-000539

PATIENT

DRUGS (2)
  1. ALLOPURINOL [Suspect]
     Active Substance: ALLOPURINOL
     Indication: Product used for unknown indication
     Route: 064
  2. AZATHIOPRINE [Suspect]
     Active Substance: AZATHIOPRINE
     Indication: Product used for unknown indication
     Route: 064

REACTIONS (3)
  - Facial paralysis [Unknown]
  - Hyper IgD syndrome [Unknown]
  - Foetal exposure during pregnancy [Unknown]
